FAERS Safety Report 10335701 (Version 2)
Quarter: 2014Q3

REPORT INFORMATION
  Report Type: Spontaneous
  Country: US (occurrence: US)
  Receive Date: 20140723
  Receipt Date: 20140723
  Transmission Date: 20150326
  Serious: Yes (Hospitalization, Other)
  Sender: FDA-Public Use
  Company Number: US-009507513-2009-199324-NL

PATIENT
  Sex: Female
  Weight: 78.91 kg

DRUGS (5)
  1. IBUPROFEN. [Concomitant]
     Active Substance: IBUPROFEN
     Dosage: 800 MG, PRN
     Dates: start: 2001, end: 20081231
  2. MK-0805 [Concomitant]
     Active Substance: FUROSEMIDE
     Indication: FLUID RETENTION
     Dosage: 20 MG, QD
     Dates: start: 20081202, end: 20081231
  3. LEVOTHYROXINE SODIUM. [Concomitant]
     Active Substance: LEVOTHYROXINE SODIUM
     Indication: HYPOTHYROIDISM
     Dosage: 25 MCG VARIES
     Dates: start: 200703
  4. ZITHROMAX [Concomitant]
     Active Substance: AZITHROMYCIN DIHYDRATE
     Indication: PHARYNGITIS
     Dates: start: 20081202
  5. NUVARING [Suspect]
     Active Substance: ETHINYL ESTRADIOL\ETONOGESTREL
     Indication: CONTRACEPTION
     Dosage: CONTINUING: NO
     Dates: start: 20080926, end: 20081230

REACTIONS (6)
  - Neuralgia [Not Recovered/Not Resolved]
  - Hypokalaemia [Unknown]
  - Fluid retention [Unknown]
  - Cerebrovascular accident [Recovering/Resolving]
  - Mitral valve incompetence [Unknown]
  - Pharyngitis [Unknown]

NARRATIVE: CASE EVENT DATE: 20081202
